FAERS Safety Report 20541159 (Version 1)
Quarter: 2022Q1

REPORT INFORMATION
  Report Type: Spontaneous
  Country: JP (occurrence: JP)
  Receive Date: 20220302
  Receipt Date: 20220302
  Transmission Date: 20220423
  Serious: Yes (Hospitalization)
  Sender: FDA-Public Use
  Company Number: JP-JNJFOC-20211017927

PATIENT
  Age: 25 Year
  Sex: Male

DRUGS (3)
  1. ACETAMINOPHEN\TRAMADOL [Suspect]
     Active Substance: ACETAMINOPHEN\TRAMADOL
     Indication: Pain prophylaxis
     Dosage: DOSE UNKNOWN
     Route: 048
  2. TREPROSTINIL [Suspect]
     Active Substance: TREPROSTINIL
     Indication: Dermatomyositis
     Dosage: DOSE UNKNOWN
     Route: 065
     Dates: start: 20180322
  3. CALONAL [Concomitant]
     Active Substance: ACETAMINOPHEN
     Dosage: DOSE UNKNOWN
     Route: 065

REACTIONS (6)
  - Pyrexia [Unknown]
  - Bacteraemia [Unknown]
  - Nausea [Unknown]
  - Erythema [Unknown]
  - Product use in unapproved indication [Unknown]
  - Off label use [Unknown]
